FAERS Safety Report 5786923-X (Version None)
Quarter: 2008Q2

REPORT INFORMATION
  Report Type: 
  Country: None (occurrence: None)
  Receive Date: 20080625
  Receipt Date: 20080613
  Transmission Date: 20081010
  Serious: Yes (Hospitalization)
  Sender: FDA-Public Use
  Company Number: DE-JNJFOC-20080603148

PATIENT
  Age: 41 Year
  Sex: Male

DRUGS (8)
  1. HALDOL [Suspect]
     Route: 048
  2. HALDOL [Suspect]
     Indication: DRUG USE FOR UNKNOWN INDICATION
     Route: 048
  3. CLOZAPINE [Interacting]
     Route: 048
  4. CLOZAPINE [Interacting]
     Route: 048
  5. CLOZAPINE [Interacting]
     Indication: DRUG USE FOR UNKNOWN INDICATION
     Dosage: STEP BY STEP INCREASED
     Route: 048
  6. PRONEURIN [Interacting]
     Indication: DRUG USE FOR UNKNOWN INDICATION
     Route: 048
  7. AMITRIPTYLINE HCL [Interacting]
     Indication: DRUG USE FOR UNKNOWN INDICATION
     Route: 048
  8. NEXIUM [Concomitant]
     Route: 048

REACTIONS (2)
  - DRUG INTERACTION [None]
  - GRAND MAL CONVULSION [None]
